FAERS Safety Report 25780934 (Version 3)
Quarter: 2025Q4

REPORT INFORMATION
  Report Type: Spontaneous
  Country: US (occurrence: US)
  Receive Date: 20250909
  Receipt Date: 20251004
  Transmission Date: 20260117
  Serious: No
  Sender: SANDOZ
  Company Number: US-SANDOZ-SDZ2025US065376

PATIENT
  Sex: Female

DRUGS (2)
  1. COMBIPATCH [Suspect]
     Active Substance: ESTRADIOL\NORETHINDRONE ACETATE
     Indication: Menopausal symptoms
     Dosage: 0.05/0.14 MG TWICE WEEKLY ON WEDNESDAY AND SATURDAY
     Route: 062
  2. RESTASIS [Concomitant]
     Active Substance: CYCLOSPORINE
     Indication: Product used for unknown indication
     Dosage: UNK, BID
     Route: 065

REACTIONS (6)
  - Application site rash [Recovered/Resolved]
  - Application site erythema [Not Recovered/Not Resolved]
  - Application site pruritus [Not Recovered/Not Resolved]
  - Exposure via direct contact [Recovered/Resolved]
  - Product adhesion issue [Not Recovered/Not Resolved]
  - Device colour issue [Not Recovered/Not Resolved]

NARRATIVE: CASE EVENT DATE: 20250101
